FAERS Safety Report 19705174 (Version 1)
Quarter: 2021Q3

REPORT INFORMATION
  Report Type: Report from Study
  Country: US (occurrence: US)
  Receive Date: 20210816
  Receipt Date: 20210816
  Transmission Date: 20211014
  Serious: Yes (Hospitalization, Other)
  Sender: FDA-Public Use
  Company Number: US-TAKEDA-2021TUS050119

PATIENT
  Age: 83 Year
  Sex: Female

DRUGS (4)
  1. TEDUGLUTIDE [Suspect]
     Active Substance: TEDUGLUTIDE
     Indication: SHORT-BOWEL SYNDROME
     Dosage: 2.4 MILLIGRAM, QD
     Route: 058
     Dates: start: 20210728
  2. TEDUGLUTIDE [Suspect]
     Active Substance: TEDUGLUTIDE
     Indication: SHORT-BOWEL SYNDROME
     Dosage: 2.4 MILLIGRAM, QD
     Route: 058
     Dates: start: 20210728
  3. TEDUGLUTIDE [Suspect]
     Active Substance: TEDUGLUTIDE
     Indication: SHORT-BOWEL SYNDROME
     Dosage: 2.4 MILLIGRAM, QD
     Route: 058
     Dates: start: 20210728
  4. TEDUGLUTIDE [Suspect]
     Active Substance: TEDUGLUTIDE
     Indication: SHORT-BOWEL SYNDROME
     Dosage: 2.4 MILLIGRAM, QD
     Route: 058
     Dates: start: 20210728

REACTIONS (2)
  - Dehydration [Unknown]
  - Renal impairment [Unknown]

NARRATIVE: CASE EVENT DATE: 20210803
